FAERS Safety Report 24183695 (Version 1)
Quarter: 2024Q3

REPORT INFORMATION
  Report Type: Spontaneous
  Country: US (occurrence: US)
  Receive Date: 20240807
  Receipt Date: 20240807
  Transmission Date: 20241016
  Serious: Yes (Other)
  Sender: AMGEN
  Company Number: US-AMGEN-USASP2024152706

PATIENT

DRUGS (14)
  1. PANITUMUMAB [Suspect]
     Active Substance: PANITUMUMAB
     Indication: Colorectal neoplasm
     Dosage: UNK
     Route: 065
  2. PANITUMUMAB [Suspect]
     Active Substance: PANITUMUMAB
     Indication: Cholangiocarcinoma
  3. BEVACIZUMAB [Suspect]
     Active Substance: BEVACIZUMAB
     Indication: Colorectal neoplasm
     Dosage: UNK
     Route: 065
  4. BEVACIZUMAB [Suspect]
     Active Substance: BEVACIZUMAB
     Indication: Cholangiocarcinoma
  5. LEUCOVORIN [Concomitant]
     Active Substance: LEUCOVORIN\LEUCOVORIN CALCIUM
     Indication: Colorectal neoplasm
     Dosage: UNK
  6. LEUCOVORIN [Concomitant]
     Active Substance: LEUCOVORIN\LEUCOVORIN CALCIUM
     Indication: Cholangiocarcinoma
  7. FLUOROURACIL [Concomitant]
     Active Substance: FLUOROURACIL
     Indication: Colorectal neoplasm
     Dosage: UNK
  8. FLUOROURACIL [Concomitant]
     Active Substance: FLUOROURACIL
     Indication: Cholangiocarcinoma
  9. OXALIPLATIN [Concomitant]
     Active Substance: OXALIPLATIN
     Indication: Colorectal neoplasm
     Dosage: UNK
  10. OXALIPLATIN [Concomitant]
     Active Substance: OXALIPLATIN
     Indication: Cholangiocarcinoma
  11. IRINOTECAN [Concomitant]
     Active Substance: IRINOTECAN
     Indication: Colorectal neoplasm
     Dosage: UNK
  12. IRINOTECAN [Concomitant]
     Active Substance: IRINOTECAN
     Indication: Cholangiocarcinoma
  13. CAPECITABINE [Concomitant]
     Active Substance: CAPECITABINE
     Indication: Colorectal neoplasm
     Dosage: UNK
  14. CAPECITABINE [Concomitant]
     Active Substance: CAPECITABINE
     Indication: Cholangiocarcinoma

REACTIONS (9)
  - Hepatic failure [Unknown]
  - Cholangiocarcinoma [Unknown]
  - Hepatic necrosis [Unknown]
  - Aspartate aminotransferase increased [Recovered/Resolved]
  - Alanine aminotransferase increased [Recovered/Resolved]
  - Pain [Unknown]
  - Fatigue [Unknown]
  - Nausea [Unknown]
  - Decreased appetite [Unknown]
